FAERS Safety Report 4599477-0 (Version None)
Quarter: 2005Q1

REPORT INFORMATION
  Report Type: 
  Country: None (occurrence: None)
  Receive Date: 20050303
  Receipt Date: 20050211
  Transmission Date: 20050727
  Serious: Yes (Other)
  Sender: FDA-Public Use
  Company Number: US_000134024

PATIENT
  Age: 63 Year
  Sex: Male
  Weight: 73 kg

DRUGS (3)
  1. HUMULIN N [Suspect]
     Indication: DIABETES MELLITUS
     Dosage: 40 U/2 DAY
     Dates: start: 19870101
  2. HUMALOG [Suspect]
     Indication: DIABETES MELLITUS INSULIN-DEPENDENT
     Dosage: 10 U AS NEEDED
     Dates: start: 20000106
  3. HUMULIN 70/30 [Suspect]
     Indication: DIABETES MELLITUS
     Dates: start: 19991201, end: 20000201

REACTIONS (11)
  - BALANCE DISORDER [None]
  - BLINDNESS UNILATERAL [None]
  - BLOOD GLUCOSE ABNORMAL [None]
  - BLOOD GLUCOSE INCREASED [None]
  - GAIT DISTURBANCE [None]
  - HYPOAESTHESIA [None]
  - INFLUENZA [None]
  - NERVE INJURY [None]
  - PHARMACEUTICAL PRODUCT COMPLAINT [None]
  - STRESS [None]
  - TUNNEL VISION [None]
